FAERS Safety Report 10142100 (Version 1)
Quarter: 2014Q2

REPORT INFORMATION
  Report Type: Report from Study
  Country: IN (occurrence: IN)
  Receive Date: 20140429
  Receipt Date: 20140429
  Transmission Date: 20141212
  Serious: Yes (Death)
  Sender: FDA-Public Use
  Company Number: PHHY2014IN052204

PATIENT
  Age: 75 Year
  Sex: Female

DRUGS (3)
  1. ACLASTA [Suspect]
     Indication: OSTEOPOROSIS
     Dosage: 5 MG/100ML, PER YEAR
     Route: 042
     Dates: start: 20130426
  2. CALCITONIN [Concomitant]
     Indication: MINERAL SUPPLEMENTATION
     Dosage: UNK UKN, UNK
     Route: 045
  3. MIACALCIN [Concomitant]
     Indication: MINERAL SUPPLEMENTATION
     Dosage: UNK UKN, UNK
     Route: 045

REACTIONS (7)
  - Completed suicide [Fatal]
  - Gait disturbance [Unknown]
  - Dysstasia [Unknown]
  - Pyrexia [Recovered/Resolved]
  - Arthralgia [Unknown]
  - Pain in extremity [Unknown]
  - Bone pain [Unknown]
